FAERS Safety Report 11420145 (Version 1)
Quarter: 2015Q3

REPORT INFORMATION
  Report Type: Spontaneous
  Country: IN (occurrence: IN)
  Receive Date: 20150826
  Receipt Date: 20150826
  Transmission Date: 20151125
  Serious: Yes (Other)
  Sender: FDA-Public Use
  Company Number: IN-GLAXOSMITHKLINE-IN2015GSK121552

PATIENT
  Age: 6 Year
  Sex: Female

DRUGS (1)
  1. ACITRETIN. [Suspect]
     Active Substance: ACITRETIN
     Indication: DERMATITIS EXFOLIATIVE
     Dosage: 25 MG, QD
     Route: 048

REACTIONS (5)
  - Rickets [Unknown]
  - Bone disorder [Unknown]
  - Knee deformity [Unknown]
  - Vitamin D deficiency [Unknown]
  - Bone pain [Unknown]
